FAERS Safety Report 5987132-1 (Version None)
Quarter: 2008Q4

REPORT INFORMATION
  Report Type: 
  Country: None (occurrence: None)
  Receive Date: 20081209
  Receipt Date: 20081209
  Transmission Date: 20090506
  Serious: No
  Sender: FDA-Public Use
  Company Number: NL-JNJFOC-20081201295

PATIENT
  Sex: Male

DRUGS (5)
  1. DURAGESIC-100 [Suspect]
     Route: 062
  2. DURAGESIC-100 [Suspect]
     Indication: PAIN
     Route: 062
  3. LYRICA [Suspect]
     Route: 065
  4. LYRICA [Suspect]
     Indication: PAIN
     Dosage: EQUAL TO 600MG
     Route: 065
  5. UNKNOWN DRUG [Suspect]
     Indication: HYPERTENSION
     Route: 065

REACTIONS (3)
  - DRUG PRESCRIBING ERROR [None]
  - FEELING ABNORMAL [None]
  - INADEQUATE ANALGESIA [None]
